FAERS Safety Report 6705191-5 (Version None)
Quarter: 2010Q2

REPORT INFORMATION
  Report Type: 
  Country: None (occurrence: None)
  Receive Date: 20100430
  Receipt Date: 20100413
  Transmission Date: 20101027
  Serious: No
  Sender: FDA-Public Use
  Company Number: US-BIOGENIDEC-2010BI010355

PATIENT
  Sex: Female

DRUGS (2)
  1. AVONEX [Suspect]
     Indication: GLIOBLASTOMA
     Route: 030
     Dates: start: 19980101, end: 20071101
  2. AVONEX [Suspect]
     Dates: end: 20091201

REACTIONS (1)
  - NO ADVERSE EVENT [None]
